FAERS Safety Report 5254572-8 (Version None)
Quarter: 2007Q1

REPORT INFORMATION
  Report Type: 
  Country: None (occurrence: None)
  Receive Date: 20070302
  Receipt Date: 20070223
  Transmission Date: 20070707
  Serious: Yes (Hospitalization)
  Sender: FDA-Public Use
  Company Number: JP-MERCK-0702USA04481

PATIENT
  Age: 78 Year
  Sex: Female

DRUGS (8)
  1. FOSAMAX [Suspect]
     Indication: PROPHYLAXIS
     Route: 048
     Dates: start: 20021015
  2. MERISLON [Concomitant]
     Route: 065
  3. CALFINA [Concomitant]
     Route: 065
  4. CIBENOL [Concomitant]
     Route: 065
  5. LOCHOL [Concomitant]
     Route: 065
  6. GOKUMISIN [Concomitant]
     Route: 065
  7. OSPAIN [Concomitant]
     Route: 065
     Dates: start: 20051031, end: 20060429
  8. GASTROM [Concomitant]
     Route: 065
     Dates: start: 20051031, end: 20060429

REACTIONS (2)
  - DUODENAL PERFORATION [None]
  - GASTRIC PERFORATION [None]
